FAERS Safety Report 14133402 (Version 1)
Quarter: 2017Q4

REPORT INFORMATION
  Report Type: Spontaneous
  Country: US (occurrence: US)
  Receive Date: 20171026
  Receipt Date: 20171026
  Transmission Date: 20180321
  Serious: No
  Sender: FDA-Public Use
  Company Number: US-PFIZER INC-2017458590

PATIENT
  Sex: Female
  Weight: 63.5 kg

DRUGS (2)
  1. GABAPENTIN. [Suspect]
     Active Substance: GABAPENTIN
     Indication: ARTHRITIS
     Dosage: UNK (300 MG CAPSULE)
  2. GABAPENTIN. [Suspect]
     Active Substance: GABAPENTIN
     Indication: PAIN

REACTIONS (8)
  - Muscle spasms [Unknown]
  - Drug ineffective for unapproved indication [Unknown]
  - Fatigue [Not Recovered/Not Resolved]
  - Neuralgia [Unknown]
  - Impaired work ability [Unknown]
  - Pain [Not Recovered/Not Resolved]
  - Neuropathy peripheral [Unknown]
  - Blood calcium increased [Unknown]
